FAERS Safety Report 9384989 (Version 1)
Quarter: 2013Q3

REPORT INFORMATION
  Report Type: Spontaneous
  Country: DE (occurrence: DE)
  Receive Date: 20130705
  Receipt Date: 20130705
  Transmission Date: 20140515
  Serious: Yes (Hospitalization)
  Sender: FDA-Public Use
  Company Number: DE-AMGEN-DEUSP2013046680

PATIENT
  Age: 80 Year
  Sex: Female

DRUGS (2)
  1. ENBREL [Suspect]
     Indication: RHEUMATOID ARTHRITIS
     Dosage: 50 MG, WEEKLY
     Route: 058
     Dates: start: 20101103
  2. TARGIN [Concomitant]
     Dosage: UNK

REACTIONS (2)
  - Fall [Not Recovered/Not Resolved]
  - Joint injury [Not Recovered/Not Resolved]
